FAERS Safety Report 4401944-7 (Version None)
Quarter: 2004Q3

REPORT INFORMATION
  Report Type: 
  Country: None (occurrence: None)
  Receive Date: 20040720
  Receipt Date: 20040715
  Transmission Date: 20050211
  Serious: Yes (Death)
  Sender: FDA-Public Use
  Company Number: PHEH2004US07676

PATIENT

DRUGS (3)
  1. TRILEPTAL [Suspect]
  2. NEURONTIN [Concomitant]
  3. PHENYTEK [Concomitant]

REACTIONS (2)
  - SEPTIC SHOCK [None]
  - WHITE BLOOD CELL COUNT DECREASED [None]
